FAERS Safety Report 15132751 (Version 2)
Quarter: 2019Q2

REPORT INFORMATION
  Report Type: Report from Study
  Country: JP (occurrence: JP)
  Receive Date: 20180712
  Receipt Date: 20190523
  Transmission Date: 20190711
  Serious: Yes (Death, Life-Threatening, Other)
  Sender: FDA-Public Use
  Company Number: JP-AMGEN-JPNCT2018094001

PATIENT
  Age: 78 Year
  Sex: Male

DRUGS (25)
  1. NAIXAN [Concomitant]
     Active Substance: NAPROXEN SODIUM
     Dosage: 300 MG, UNK
     Route: 048
     Dates: end: 20150628
  2. HARNAL [Concomitant]
     Active Substance: TAMSULOSIN HYDROCHLORIDE
     Indication: BENIGN PROSTATIC HYPERPLASIA
     Dosage: 0.2 MG, UNK
     Route: 048
     Dates: end: 20150628
  3. CIPROXAN [Concomitant]
     Active Substance: CIPROFLOXACIN
     Indication: BACTERIAL INFECTION
     Dosage: 400 MG, UNK
     Route: 048
     Dates: start: 20150617, end: 20150628
  4. NINJIN^YOEITO [Concomitant]
     Active Substance: HERBALS
     Dosage: 9 G, UNK
     Route: 048
     Dates: end: 20150628
  5. METHYCOBAL [Concomitant]
     Active Substance: METHYLCOBALAMIN
     Dosage: 500 MUG, UNK
     Route: 065
     Dates: start: 20150403, end: 20150417
  6. ARICEPT [Concomitant]
     Active Substance: DONEPEZIL HYDROCHLORIDE
     Dosage: 3 MG, UNK
     Route: 048
     Dates: start: 20150610, end: 20150628
  7. ZOSYN [Concomitant]
     Active Substance: PIPERACILLIN SODIUM\TAZOBACTAM SODIUM
     Indication: SEPSIS
     Dosage: 4.5 G, UNK
     Route: 065
     Dates: start: 20150629, end: 20150629
  8. CATABON [Concomitant]
     Active Substance: DOPAMINE HYDROCHLORIDE
     Indication: SHOCK
     Dosage: UNK
     Route: 065
     Dates: start: 20150629, end: 20150629
  9. DARBEPOETIN ALFA [Suspect]
     Active Substance: DARBEPOETIN ALFA
     Dosage: 120 MUG, QWK
     Route: 058
     Dates: start: 20150320, end: 20150506
  10. CEFTRIAXONE SODIUM. [Concomitant]
     Active Substance: CEFTRIAXONE SODIUM
     Indication: BACTERIAL INFECTION
     Dosage: 1 G, UNK
     Route: 065
     Dates: start: 20150617, end: 20150619
  11. KENKETU GLOVENIN-I [Concomitant]
     Active Substance: HUMAN IMMUNOGLOBULIN G
     Indication: SEPTIC SHOCK
     Dosage: 5 G, UNK
     Route: 065
     Dates: start: 20150629, end: 20150629
  12. FOLIAMIN [Concomitant]
     Active Substance: FOLIC ACID
     Dosage: 15 MG
     Route: 048
     Dates: start: 20150403, end: 20150628
  13. KENKETU GLOVENIN-I [Concomitant]
     Active Substance: HUMAN IMMUNOGLOBULIN G
     Indication: HYPOGAMMAGLOBULINAEMIA
     Dosage: 5 G, UNK
     Route: 065
     Dates: start: 20150619, end: 20150619
  14. GASTER [Concomitant]
     Active Substance: FAMOTIDINE
     Dosage: 20 MG, UNK
     Route: 048
     Dates: end: 20150628
  15. HUMULIN R [Concomitant]
     Active Substance: INSULIN HUMAN
     Indication: STEROID DIABETES
     Dosage: 20 IU, UNK
     Route: 065
     Dates: start: 20150617, end: 20150619
  16. LUPRAC [Concomitant]
     Active Substance: TORSEMIDE
     Dosage: 4 MG, UNK
     Route: 048
     Dates: end: 20150524
  17. SOLU-CORTEF [Concomitant]
     Active Substance: HYDROCORTISONE SODIUM SUCCINATE
     Indication: SEPTIC SHOCK
     Dosage: 200 MG, UNK
     Route: 065
     Dates: start: 20150629, end: 20150629
  18. PREDONINE [Concomitant]
     Active Substance: PREDNISOLONE
     Dosage: 20 MG, UNK
     Route: 048
     Dates: end: 20150628
  19. PRIMOBOLAN-DEPOT [Concomitant]
     Active Substance: METHENOLONE ENANTHATE
     Indication: MYELODYSPLASTIC SYNDROME
     Dosage: 20 MG, UNK
     Route: 048
     Dates: end: 20150628
  20. DARBEPOETIN ALFA [Suspect]
     Active Substance: DARBEPOETIN ALFA
     Indication: MYELODYSPLASTIC SYNDROME
     Dosage: 120 MUG, UNK
     Route: 058
     Dates: start: 20150603, end: 20150624
  21. DARBEPOETIN ALFA [Suspect]
     Active Substance: DARBEPOETIN ALFA
     Dosage: 120 MUG, QWK
     Route: 058
     Dates: start: 20150518, end: 20150525
  22. DIFLUCAN [Concomitant]
     Active Substance: FLUCONAZOLE
     Dosage: 100 MG, UNK
     Route: 048
     Dates: end: 20150628
  23. COR TYZINE [Concomitant]
     Dosage: UNK
     Route: 045
     Dates: end: 20150524
  24. DESFERAL [Concomitant]
     Active Substance: DEFEROXAMINE MESYLATE
     Dosage: UNK
     Route: 065
     Dates: start: 20150410
  25. AUGMENTIN [Concomitant]
     Active Substance: AMOXICILLIN\CLAVULANATE POTASSIUM
     Indication: BRONCHITIS
     Dosage: 750 MG, UNK
     Route: 048
     Dates: start: 20150508, end: 20150514

REACTIONS (8)
  - Urinary incontinence [Not Recovered/Not Resolved]
  - Bronchitis [Recovered/Resolved]
  - Infection [Not Recovered/Not Resolved]
  - Steroid diabetes [Not Recovered/Not Resolved]
  - Septic shock [Fatal]
  - Bacterial infection [Not Recovered/Not Resolved]
  - Oedema due to cardiac disease [Unknown]
  - Hypogammaglobulinaemia [Not Recovered/Not Resolved]

NARRATIVE: CASE EVENT DATE: 20150508
